FAERS Safety Report 7883391-9 (Version None)
Quarter: 2011Q4

REPORT INFORMATION
  Report Type: 
  Country: None (occurrence: None)
  Receive Date: 20111102
  Receipt Date: 20111019
  Transmission Date: 20120403
  Serious: Yes (Death, Other)
  Sender: FDA-Public Use
  Company Number: US-BAYER-2011-055486

PATIENT
  Age: 75 Year
  Sex: Female

DRUGS (4)
  1. BLOOD TRANSFUSION, AUXILIARY PRODUCTS [Concomitant]
     Dosage: UNK
     Route: 042
     Dates: start: 20060115
  2. TRASYLOL [Suspect]
     Indication: CORONARY ARTERY BYPASS
     Dosage: UNK
     Route: 042
     Dates: start: 20060115
  3. CONTRAST MEDIA [Concomitant]
     Indication: CATHETERISATION CARDIAC
  4. VASOPRESSIN AND ANALOGUES [Concomitant]
     Dosage: UNK
     Route: 042
     Dates: start: 20060115

REACTIONS (10)
  - RENAL FAILURE [None]
  - FEAR [None]
  - RENAL IMPAIRMENT [None]
  - EMOTIONAL DISTRESS [None]
  - RENAL INJURY [None]
  - DEATH [None]
  - PAIN [None]
  - ANXIETY [None]
  - UNEVALUABLE EVENT [None]
  - STRESS [None]
